FAERS Safety Report 5151497-3 (Version None)
Quarter: 2006Q4

REPORT INFORMATION
  Report Type: 
  Country: None (occurrence: None)
  Receive Date: 20061114
  Receipt Date: 20061114
  Transmission Date: 20070319
  Serious: Yes (Other)
  Sender: FDA-Public Use
  Company Number: None

PATIENT
  Sex: Female
  Weight: 61.2356 kg

DRUGS (2)
  1. ACETAMINOPHEN   500 MG.   EQUATE [Suspect]
     Indication: HEADACHE
     Dosage: 2 CAPLETS   EVERY 6 HOURS  PO
     Route: 048
     Dates: start: 20061105, end: 20061108
  2. ACETAMINOPHEN   500 MG.   EQUATE [Suspect]
     Indication: TOOTHACHE
     Dosage: 2 CAPLETS   EVERY 6 HOURS  PO
     Route: 048
     Dates: start: 20061105, end: 20061108

REACTIONS (1)
  - HAEMORRHAGE [None]
